FAERS Safety Report 4484872-0 (Version None)
Quarter: 2004Q3

REPORT INFORMATION
  Report Type: 
  Country: None (occurrence: None)
  Receive Date: 20040921
  Receipt Date: 20030922
  Transmission Date: 20050211
  Serious: Yes (Hospitalization)
  Sender: FDA-Public Use
  Company Number: 163-20785-03090582 (0)

PATIENT
  Age: 62 Year
  Sex: Female
  Weight: 58.0604 kg

DRUGS (6)
  1. THALOMID [Suspect]
     Indication: NON-SMALL CELL LUNG CANCER STAGE IV
     Dosage: 200 MG, QD, ORAL
     Route: 048
     Dates: start: 20030902, end: 20030918
  2. IRINOTECAN HCL [Concomitant]
  3. GEMCITABINE [Concomitant]
  4. REMERON [Concomitant]
  5. OXYCODONE HCL [Concomitant]
  6. ASPIRIN [Concomitant]

REACTIONS (11)
  - ASTHENIA [None]
  - CHEST PAIN [None]
  - CHILLS [None]
  - COUGH [None]
  - DECREASED APPETITE [None]
  - DEEP VEIN THROMBOSIS [None]
  - DYSPNOEA [None]
  - HYPOXIA [None]
  - OEDEMA PERIPHERAL [None]
  - PULMONARY EMBOLISM [None]
  - PYREXIA [None]
